FAERS Safety Report 5636281-6 (Version None)
Quarter: 2008Q1

REPORT INFORMATION
  Report Type: 
  Country: None (occurrence: None)
  Receive Date: 20080225
  Receipt Date: 20080215
  Transmission Date: 20080703
  Serious: Yes (Hospitalization)
  Sender: FDA-Public Use
  Company Number: US-ELI_LILLY_AND_COMPANY-US200802004310

PATIENT
  Sex: Female

DRUGS (2)
  1. ZYPREXA [Suspect]
     Route: 048
     Dates: start: 20040101
  2. HALOPERIDOL DECANOATE [Concomitant]
     Dosage: UNK, AS NEEDED
     Route: 030
     Dates: start: 20040101

REACTIONS (2)
  - CORONARY ARTERY DISEASE [None]
  - MENTAL DISORDER [None]
